FAERS Safety Report 7429890-5 (Version None)
Quarter: 2011Q2

REPORT INFORMATION
  Report Type: 
  Country: None (occurrence: None)
  Receive Date: 20110421
  Receipt Date: 20110412
  Transmission Date: 20111010
  Serious: Yes (Hospitalization, Other)
  Sender: FDA-Public Use
  Company Number: US-ASTRAZENECA-2011SE20729

PATIENT
  Age: 47 Year
  Sex: Male
  Weight: 136.1 kg

DRUGS (2)
  1. PROTONIX [Concomitant]
  2. SEROQUEL [Suspect]
     Indication: PANIC ATTACK
     Route: 048
     Dates: start: 20040101

REACTIONS (6)
  - ROAD TRAFFIC ACCIDENT [None]
  - WALKING AID USER [None]
  - LOWER LIMB FRACTURE [None]
  - SCIATIC NERVE INJURY [None]
  - SCIATICA [None]
  - OFF LABEL USE [None]
